FAERS Safety Report 8176453 (Version 3)
Quarter: 2022Q4

REPORT INFORMATION
  Report Type: Spontaneous
  Country: US (occurrence: None)
  Receive Date: 20111011
  Receipt Date: 20221006
  Transmission Date: 20230113
  Serious: Yes (Hospitalization, Other)
  Sender: FDA-Public Use
  Company Number: US-ROCHE-1000488

PATIENT
  Age: 63 Year
  Sex: Female

DRUGS (9)
  1. BONIVA [Suspect]
     Active Substance: IBANDRONATE SODIUM
     Indication: Osteoporosis
     Route: 065
     Dates: start: 200606, end: 200703
  2. BONIVA [Suspect]
     Active Substance: IBANDRONATE SODIUM
     Route: 065
     Dates: start: 2009
  3. FOSAMAX [Suspect]
     Active Substance: ALENDRONATE SODIUM
     Indication: Osteoporosis
     Route: 065
     Dates: start: 200109, end: 200606
  4. FOSAMAX [Suspect]
     Active Substance: ALENDRONATE SODIUM
     Route: 065
     Dates: start: 200703, end: 200909
  5. LISINOPRIL [Concomitant]
     Active Substance: LISINOPRIL
  6. HYDROCHLOROTHIAZIDE [Concomitant]
     Active Substance: HYDROCHLOROTHIAZIDE
  7. PROVENTIL [Concomitant]
     Active Substance: ALBUTEROL
  8. ADVAIR HFA [Concomitant]
     Active Substance: FLUTICASONE PROPIONATE\SALMETEROL XINAFOATE
  9. LOVENOX [Concomitant]
     Active Substance: ENOXAPARIN SODIUM

REACTIONS (4)
  - Femur fracture [Unknown]
  - Low turnover osteopathy [Unknown]
  - Emotional distress [Unknown]
  - Anxiety [Unknown]

NARRATIVE: CASE EVENT DATE: 20090923
